FAERS Safety Report 4340030-1 (Version None)
Quarter: 2004Q2

REPORT INFORMATION
  Report Type: 
  Country: None (occurrence: None)
  Receive Date: 20040416
  Receipt Date: 20031119
  Transmission Date: 20050107
  Serious: Yes (Other)
  Sender: FDA-Public Use
  Company Number: US-ROCHE-352337

PATIENT
  Age: 27 Year
  Sex: Female
  Weight: 113.4 kg

DRUGS (2)
  1. PEGASYS [Suspect]
     Indication: HEPATITIS C
     Route: 058
     Dates: start: 20031103, end: 20031119
  2. COPEGUS [Suspect]
     Indication: HEPATITIS C
     Route: 048
     Dates: start: 20031103, end: 20031119

REACTIONS (12)
  - ASTHENIA [None]
  - DEPRESSION [None]
  - DIARRHOEA [None]
  - FATIGUE [None]
  - GASTROOESOPHAGEAL REFLUX DISEASE [None]
  - HEADACHE [None]
  - HOMICIDAL IDEATION [None]
  - MIGRAINE [None]
  - NAUSEA [None]
  - NIGHTMARE [None]
  - SUICIDAL IDEATION [None]
  - VOMITING [None]
